FAERS Safety Report 15456304 (Version 1)
Quarter: 2018Q4

REPORT INFORMATION
  Report Type: Other
  Country: LK (occurrence: LK)
  Receive Date: 20181002
  Receipt Date: 20181002
  Transmission Date: 20190204
  Serious: Yes (Death)
  Sender: FDA-Public Use
  Company Number: LK-B. BRAUN MEDICAL INC.-2055586

PATIENT
  Age: 52 Year
  Sex: Male

DRUGS (1)
  1. CEFTAZIDIME AND DEXTROSE [Suspect]
     Active Substance: CEFTAZIDIME
     Route: 042

REACTIONS (1)
  - Kounis syndrome [None]
